FAERS Safety Report 13104098 (Version 1)
Quarter: 2017Q1

REPORT INFORMATION
  Report Type: Spontaneous
  Country: US (occurrence: US)
  Receive Date: 20170111
  Receipt Date: 20170111
  Transmission Date: 20170428
  Serious: Yes (Death, Other)
  Sender: FDA-Public Use
  Company Number: US-ROCHE-1877793

PATIENT
  Age: 89 Year
  Sex: Female

DRUGS (1)
  1. ACTEMRA [Suspect]
     Active Substance: TOCILIZUMAB
     Indication: PRODUCT USED FOR UNKNOWN INDICATION
     Route: 058
     Dates: start: 20151015

REACTIONS (4)
  - Dyspnoea [Unknown]
  - Cardiac failure congestive [Unknown]
  - Death [Fatal]
  - Anal cancer [Unknown]

NARRATIVE: CASE EVENT DATE: 20170108
